FAERS Safety Report 8601013-6 (Version None)
Quarter: 2012Q3

REPORT INFORMATION
  Report Type: 
  Country: None (occurrence: None)
  Receive Date: 20120817
  Receipt Date: 20120806
  Transmission Date: 20120928
  Serious: Yes (Other)
  Sender: FDA-Public Use
  Company Number: JP-ASTELLAS-2012JP007526

PATIENT
  Sex: Female

DRUGS (7)
  1. CEFAZOLIN [Suspect]
     Indication: PERITONITIS
     Dosage: UNK
     Route: 065
  2. ISEPAMICIN [Concomitant]
     Indication: FUNGAL PERITONITIS
  3. LEVOFLOXACIN [Concomitant]
     Indication: PERITONITIS
     Dosage: UNK
     Route: 048
  4. CEFAZOLIN [Suspect]
     Indication: FUNGAL PERITONITIS
     Dosage: UNK
     Route: 065
  5. ISEPAMICIN [Concomitant]
     Indication: PERITONITIS
     Dosage: UNK
     Route: 065
  6. ITRACONAZOLE [Concomitant]
     Indication: FUNGAL PERITONITIS
     Dosage: UNK
     Route: 048
  7. MICAFUNGIN [Suspect]
     Indication: FUNGAL PERITONITIS
     Dosage: UNK
     Route: 065

REACTIONS (3)
  - DRUG INEFFECTIVE [None]
  - LIVER DISORDER [None]
  - FUNGAL PERITONITIS [None]
